FAERS Safety Report 5705421-2 (Version None)
Quarter: 2008Q2

REPORT INFORMATION
  Report Type: 
  Country: None (occurrence: None)
  Receive Date: 20080415
  Receipt Date: 20080404
  Transmission Date: 20081010
  Serious: Yes (Hospitalization)
  Sender: FDA-Public Use
  Company Number: US-BAYER-200811756NA

PATIENT
  Age: 45 Year

DRUGS (1)
  1. BETASERON [Suspect]
     Indication: MULTIPLE SCLEROSIS
     Route: 058
     Dates: start: 20071101, end: 20080101

REACTIONS (3)
  - ABDOMINAL PAIN [None]
  - GASTRIC DISORDER [None]
  - VOMITING [None]
